FAERS Safety Report 9218071 (Version 1)
Quarter: 2013Q2

REPORT INFORMATION
  Report Type: Spontaneous
  Country: US (occurrence: US)
  Receive Date: 20130408
  Receipt Date: 20130408
  Transmission Date: 20140414
  Serious: Yes (Other)
  Sender: FDA-Public Use
  Company Number: US-PFIZER INC-2013109886

PATIENT
  Age: 46 Year
  Sex: Female
  Weight: 44.9 kg

DRUGS (7)
  1. LYRICA [Suspect]
     Indication: NEUROPATHY PERIPHERAL
     Dosage: 75 MG, 2X/DAY
     Route: 048
     Dates: start: 2012, end: 2012
  2. LYRICA [Suspect]
     Dosage: 100 MG, 2X/DAY
     Route: 048
     Dates: start: 2012
  3. LYRICA [Suspect]
     Dosage: 150 MG, 2X/DAY
     Route: 048
  4. LYRICA [Suspect]
     Route: 048
  5. PREMARIN [Suspect]
     Indication: MENOPAUSE
     Dosage: UNK
     Dates: start: 2012
  6. AMBIEN [Concomitant]
     Dosage: UNK
  7. KEPPRA [Concomitant]
     Dosage: UNK

REACTIONS (3)
  - Convulsion [Unknown]
  - Neuropathy peripheral [Unknown]
  - Restless legs syndrome [Unknown]
